FAERS Safety Report 25574101 (Version 1)
Quarter: 2025Q3

REPORT INFORMATION
  Report Type: Spontaneous
  Country: EU (occurrence: EU)
  Receive Date: 20250717
  Receipt Date: 20250717
  Transmission Date: 20251021
  Serious: Yes (Hospitalization)
  Sender: BAUSCH AND LOMB
  Company Number: EU-AUROBINDO-AUR-APL-2025-022016

PATIENT
  Age: 9 Month
  Sex: Male

DRUGS (3)
  1. HYDROCORTISONE [Suspect]
     Active Substance: HYDROCORTISONE
     Indication: Septo-optic dysplasia
     Route: 065
  2. DESMOPRESSIN [Suspect]
     Active Substance: DESMOPRESSIN
     Indication: Septo-optic dysplasia
     Route: 065
  3. LEVOTHYROXINE [Suspect]
     Active Substance: LEVOTHYROXINE
     Indication: Septo-optic dysplasia
     Route: 065

REACTIONS (4)
  - Hyperthermia [Recovered/Resolved with Sequelae]
  - Polyuria [Recovered/Resolved]
  - Hypernatraemia [Recovered/Resolved]
  - Off label use [Unknown]
